FAERS Safety Report 16189484 (Version 3)
Quarter: 2019Q2

REPORT INFORMATION
  Report Type: Spontaneous
  Country: US (occurrence: US)
  Receive Date: 20190412
  Receipt Date: 20190606
  Transmission Date: 20190711
  Serious: No
  Sender: FDA-Public Use
  Company Number: US-PFIZER INC-2019154597

PATIENT
  Age: 53 Year
  Sex: Female
  Weight: 92.53 kg

DRUGS (1)
  1. GENOTROPIN MQ [Suspect]
     Active Substance: SOMATROPIN
     Indication: GROWTH HORMONE DEFICIENCY
     Dosage: 0.6 MG, 1X/DAY (EVERY NIGHT)
     Route: 058

REACTIONS (6)
  - Crying [Recovered/Resolved]
  - Drug level increased [Recovered/Resolved]
  - Depression [Recovered/Resolved]
  - Injection site pain [Recovered/Resolved]
  - Injection site extravasation [Recovered/Resolved]
  - Accidental exposure to product [Recovered/Resolved]
